FAERS Safety Report 21304074 (Version 1)
Quarter: 2022Q3

REPORT INFORMATION
  Report Type: Spontaneous
  Country: US (occurrence: None)
  Receive Date: 20220907
  Receipt Date: 20220907
  Transmission Date: 20221026
  Serious: No
  Sender: FDA-Public Use
  Company Number: US-ARIS GLOBAL-202103-0354

PATIENT
  Age: 61 Year
  Sex: Male

DRUGS (8)
  1. OXERVATE [Suspect]
     Active Substance: CENEGERMIN-BKBJ
     Indication: Neurotrophic keratopathy
     Route: 047
     Dates: start: 20210211
  2. CYCLOBENZAPRINE HYDROCHLORIDE [Concomitant]
     Active Substance: CYCLOBENZAPRINE HYDROCHLORIDE
  3. BENADRYL [Concomitant]
     Active Substance: DIPHENHYDRAMINE HYDROCHLORIDE
  4. LEVOTHYROXINE [Concomitant]
     Active Substance: LEVOTHYROXINE
  5. RHOPRESSA [Concomitant]
     Active Substance: NETARSUDIL MESYLATE
  6. DEXAMETHASONE-MOXIFLOXACIN [Concomitant]
  7. BETAXOLOL HYDROCHLORIDE [Concomitant]
     Active Substance: BETAXOLOL HYDROCHLORIDE
  8. ALBUTEROL SULFATE [Concomitant]
     Active Substance: ALBUTEROL SULFATE

REACTIONS (5)
  - Eye pain [Unknown]
  - Eye irritation [Unknown]
  - Lacrimation increased [Unknown]
  - Product storage error [Unknown]
  - Therapy interrupted [Unknown]

NARRATIVE: CASE EVENT DATE: 20210907
